FAERS Safety Report 5976137-2 (Version None)
Quarter: 2008Q4

REPORT INFORMATION
  Report Type: 
  Country: None (occurrence: None)
  Receive Date: 20081202
  Receipt Date: 20081124
  Transmission Date: 20090506
  Serious: Yes (Hospitalization)
  Sender: FDA-Public Use
  Company Number: FR-ASTRAZENECA-2008CG01736

PATIENT
  Age: 586 Day
  Sex: Female

DRUGS (3)
  1. EMLA [Suspect]
     Indication: LOCAL ANAESTHESIA
     Route: 061
     Dates: start: 20080328, end: 20080328
  2. PENTAVAC [Suspect]
     Indication: IMMUNISATION
     Route: 030
     Dates: start: 20080328, end: 20080328
  3. PREVENAR [Suspect]
     Indication: IMMUNISATION
     Route: 030
     Dates: start: 20080328, end: 20080328

REACTIONS (1)
  - PYOMYOSITIS [None]
